FAERS Safety Report 11219457 (Version 3)
Quarter: 2016Q3

REPORT INFORMATION
  Report Type: Spontaneous
  Country: US (occurrence: US)
  Receive Date: 20150625
  Receipt Date: 20160929
  Transmission Date: 20161109
  Serious: Yes (Other)
  Sender: FDA-Public Use
  Company Number: US-PFIZER INC-2015208713

PATIENT
  Age: 61 Year
  Sex: Female
  Weight: 87 kg

DRUGS (43)
  1. LYRICA [Suspect]
     Active Substance: PREGABALIN
     Indication: CARDIOVASCULAR DISORDER
     Dosage: 75 MG, 3X/DAY
     Route: 048
     Dates: end: 2015
  2. LYRICA [Suspect]
     Active Substance: PREGABALIN
     Indication: PARAESTHESIA
  3. OXYCODONE [Concomitant]
     Active Substance: OXYCODONE
     Indication: PAIN
     Dosage: 10 MG, 4X/DAY
  4. POTASSIUM FLUORIDE [Concomitant]
     Dosage: 8 MEQ, 2X/DAY
  5. PROMETHAZINE HCL [Concomitant]
     Active Substance: PROMETHAZINE HYDROCHLORIDE
     Indication: NAUSEA
     Dosage: 50 MG, 4X/DAY
  6. VENLAFAXINE HCL [Concomitant]
     Active Substance: VENLAFAXINE HYDROCHLORIDE
     Dosage: 75 MG, 1X/DAY
  7. XANAX [Concomitant]
     Active Substance: ALPRAZOLAM
     Dosage: 1 MG, 3-4 TIMES EVERY DAY
     Route: 048
  8. ACYCLOVIR. [Concomitant]
     Active Substance: ACYCLOVIR
     Dosage: 400 MG, 3X/DAY
     Route: 048
  9. NITROGLYCERINE [Concomitant]
     Active Substance: NITROGLYCERIN
     Indication: PAIN IN EXTREMITY
  10. TEMAZEPAM. [Concomitant]
     Active Substance: TEMAZEPAM
     Indication: SLEEP DISORDER
     Dosage: 30 MG, NIGHT BED TIME AS NEEDED
     Route: 048
  11. LEVOFLOXACIN. [Concomitant]
     Active Substance: LEVOFLOXACIN
     Dosage: 750 MG, 1X/DAY
     Route: 048
  12. OMEPRAZOLE. [Concomitant]
     Active Substance: OMEPRAZOLE
     Dosage: 20 MG, 1X/DAY
     Route: 048
  13. NASONEX [Concomitant]
     Active Substance: MOMETASONE FUROATE
     Dosage: 50 MCG/ACTUATION SPRAY BY INTRANASAL ROUTE EVERY DAY 1 TO 2 SPRAYS IN EACH NOSTRIL AT NIGHT
     Route: 045
  14. LYRICA [Suspect]
     Active Substance: PREGABALIN
     Indication: BLISTER
  15. LORATADINE. [Concomitant]
     Active Substance: LORATADINE
     Dosage: 10 MG, 1X/DAY
  16. OXYCODONE [Concomitant]
     Active Substance: OXYCODONE
     Indication: ARTHRITIS
  17. AMLODIPINE BESILATE [Concomitant]
     Active Substance: AMLODIPINE BESYLATE
     Indication: BLOOD PRESSURE INCREASED
     Dosage: 5 MG, 1X/DAY
  18. ATENOLOL. [Concomitant]
     Active Substance: ATENOLOL
     Indication: BLOOD PRESSURE ABNORMAL
     Dosage: 50 MG, 1X/DAY
     Route: 048
  19. LIPITOR [Concomitant]
     Active Substance: ATORVASTATIN CALCIUM
     Dosage: 40 MG, 1X/DAY
  20. ROPINIROLE HCL [Concomitant]
     Active Substance: ROPINIROLE HYDROCHLORIDE
     Dosage: 0.25 MG, 1X/DAY (AT BEDTIME)
     Route: 048
  21. ASPIRIN. [Concomitant]
     Active Substance: ASPIRIN
     Dosage: 81 MG, 1X/DAY
  22. LASIX [Concomitant]
     Active Substance: FUROSEMIDE
     Indication: FLUID RETENTION
     Dosage: 40 MG, 1X/DAY
  23. MOMETASONE FUROATE. [Concomitant]
     Active Substance: MOMETASONE FUROATE
     Dosage: TWO SPRAY IN EACH NOSTRIL
  24. NITROGLYCERINE [Concomitant]
     Active Substance: NITROGLYCERIN
     Indication: MUSCLE TIGHTNESS
     Dosage: 0.4 MG, AT FIRST SIGN OF AN ATTACK, NO MORE THAN 3 SPRAYS ARE RECOMMENDED WITHIN 15 MIN PERIOD
     Route: 060
  25. VENTOLIN HFA [Concomitant]
     Active Substance: ALBUTEROL SULFATE
     Dosage: 90 MCG ACTUATION AEROSOL INHALER TO INHALE 1 TO 2 PUFFS BY MOUTH EVERY 4 TO 6 HOURS AS NEEDED
  26. LOMOTIL [Concomitant]
     Active Substance: ATROPINE SULFATE\DIPHENOXYLATE HYDROCHLORIDE
     Dosage: 2[ATROPINE SULFATE 2.5 MG/ DIPHENOXYLATE HYDROCHLORIDE 0.025 MG], 4X/DAY AS NEEDED
     Route: 048
  27. LYRICA [Suspect]
     Active Substance: PREGABALIN
     Indication: NEUROPATHY PERIPHERAL
     Dosage: 75 MG, 2X/DAY
     Route: 048
     Dates: start: 2013
  28. LYRICA [Suspect]
     Active Substance: PREGABALIN
     Indication: FEELING HOT
  29. LYRICA [Suspect]
     Active Substance: PREGABALIN
     Indication: GAIT DISTURBANCE
  30. LIPITOR [Concomitant]
     Active Substance: ATORVASTATIN CALCIUM
     Dosage: 80 MG, DAILY
     Route: 048
  31. METFORMIN [Concomitant]
     Active Substance: METFORMIN HYDROCHLORIDE
     Indication: DIABETES MELLITUS
     Dosage: UNK
  32. ROPINIROLE HCL [Concomitant]
     Active Substance: ROPINIROLE HYDROCHLORIDE
     Indication: RESTLESS LEGS SYNDROME
     Dosage: 25 MG, 1X/DAY BED TIME
  33. PERCOCET [Concomitant]
     Active Substance: ACETAMINOPHEN\OXYCODONE HYDROCHLORIDE
     Dosage: [OXYCODONE HYDROCHLORIDE 10 MG/ PARACETAMOL 325 MG], 4X/DAY PRN
     Route: 048
  34. DOCUSATE SODIUM. [Concomitant]
     Active Substance: DOCUSATE SODIUM
     Dosage: 100 MG, 2X/DAY
     Route: 048
  35. CYCLOBENZAPRINE [Concomitant]
     Active Substance: CYCLOBENZAPRINE
     Dosage: 10 MG, 3X/DAY
     Route: 048
  36. FUROSEMIDE. [Concomitant]
     Active Substance: FUROSEMIDE
     Dosage: 40 MG, 2X/DAY
     Route: 048
  37. ALPRAZOLAM. [Concomitant]
     Active Substance: ALPRAZOLAM
     Indication: ANXIETY
     Dosage: 1 MG, EVERY 8 HOURS OR AS NEEDED
     Route: 048
  38. NITROGLYCERINE [Concomitant]
     Active Substance: NITROGLYCERIN
     Indication: CHEST PAIN
  39. PLAVIX [Concomitant]
     Active Substance: CLOPIDOGREL BISULFATE
     Dosage: 75 MG, DAILY
     Route: 048
  40. COZAAR [Concomitant]
     Active Substance: LOSARTAN POTASSIUM
     Dosage: 100 MG, 1X/DAY
     Route: 048
  41. LYRICA [Suspect]
     Active Substance: PREGABALIN
     Indication: PAIN
  42. FLUTICASONE PROP [Concomitant]
     Dosage: 50 MCG SPRAY TO SPRAY 1-2 PUFFS IN EACH NOSE AT NIGHT
     Route: 045
  43. METFORMIN HCL [Concomitant]
     Active Substance: METFORMIN HYDROCHLORIDE
     Indication: DIABETES MELLITUS
     Dosage: 500 MG, 2X/DAY WITH MORNING AND EVENING MEALS
     Route: 048

REACTIONS (6)
  - Carotid artery occlusion [Unknown]
  - Gait disturbance [Not Recovered/Not Resolved]
  - Pain [Not Recovered/Not Resolved]
  - Blister [Not Recovered/Not Resolved]
  - Pain in extremity [Not Recovered/Not Resolved]
  - Condition aggravated [Not Recovered/Not Resolved]

NARRATIVE: CASE EVENT DATE: 20150325
